FAERS Safety Report 7992405-7 (Version None)
Quarter: 2011Q4

REPORT INFORMATION
  Report Type: 
  Country: None (occurrence: None)
  Receive Date: 20111219
  Receipt Date: 20110208
  Transmission Date: 20120403
  Serious: No
  Sender: FDA-Public Use
  Company Number: US-ASTRAZENECA-2011SE07555

PATIENT
  Age: 42 Year
  Sex: Male

DRUGS (2)
  1. CRESTOR [Suspect]
     Indication: DYSLIPIDAEMIA
     Route: 048
  2. NIASPAN [Suspect]
     Indication: DYSLIPIDAEMIA
     Route: 065

REACTIONS (1)
  - ERECTILE DYSFUNCTION [None]
